FAERS Safety Report 15970605 (Version 4)
Quarter: 2019Q3

REPORT INFORMATION
  Report Type: Spontaneous
  Country: US (occurrence: US)
  Receive Date: 20190215
  Receipt Date: 20190719
  Transmission Date: 20191004
  Serious: Yes (Hospitalization)
  Sender: FDA-Public Use
  Company Number: US-SHIRE-US201905184

PATIENT
  Age: 54 Year
  Sex: Female
  Weight: 252 kg

DRUGS (1)
  1. GATTEX [Suspect]
     Active Substance: TEDUGLUTIDE\WATER
     Indication: SHORT-BOWEL SYNDROME
     Dosage: 0.57 MILLILITER, 1X/DAY:QD
     Route: 050

REACTIONS (4)
  - Hyperkeratosis [Unknown]
  - Device issue [Unknown]
  - Migraine [Unknown]
  - Hospitalisation [Unknown]

NARRATIVE: CASE EVENT DATE: 201901
